FAERS Safety Report 13402430 (Version 8)
Quarter: 2019Q4

REPORT INFORMATION
  Report Type: Report from Study
  Country: ES (occurrence: ES)
  Receive Date: 20170404
  Receipt Date: 20191016
  Transmission Date: 20200122
  Serious: Yes (Death, Hospitalization, Other)
  Sender: FDA-Public Use
  Company Number: PHHO2017ES004283

PATIENT
  Age: 74 Year
  Sex: Female
  Weight: 53.5 kg

DRUGS (8)
  1. SIMVASTATIN. [Concomitant]
     Active Substance: SIMVASTATIN
     Indication: DYSLIPIDAEMIA
     Dosage: 20 MG, QD
     Route: 065
     Dates: start: 2007
  2. LORAZEPAM. [Concomitant]
     Active Substance: LORAZEPAM
     Indication: ANXIETY
     Dosage: 1 MG
     Route: 065
     Dates: start: 2004
  3. INZITAN [Concomitant]
     Active Substance: CYANOCOBALAMIN\DEXAMETHASONE\LIDOCAINE HYDROCHLORIDE\THIAMINE HYDROCHLORIDE
     Indication: ABDOMINAL PAIN
     Dosage: 25 MG
     Route: 065
     Dates: start: 20170127
  4. LEE011 [Suspect]
     Active Substance: RIBOCICLIB
     Indication: LIPOSARCOMA
     Dosage: 300 MG, ^2 WEEKS ON/2 WEEKS OFF^
     Route: 048
     Dates: start: 20170214, end: 20170223
  5. FENTANYL. [Concomitant]
     Active Substance: FENTANYL
     Indication: ABDOMINAL PAIN
     Dosage: 25 MG
     Route: 065
     Dates: start: 20161231
  6. HDM201 [Suspect]
     Active Substance: SIREMADLIN
     Indication: LIPOSARCOMA
     Dosage: 150 MG Q4W
     Route: 048
     Dates: start: 20170214, end: 20170214
  7. INDOMETACIN [Concomitant]
     Active Substance: INDOMETHACIN
     Indication: ABDOMINAL PAIN
     Dosage: 25 MG
     Route: 065
     Dates: start: 20161231
  8. RANITIDINE. [Concomitant]
     Active Substance: RANITIDINE
     Indication: PROPHYLAXIS
     Dosage: UNK
     Route: 065
     Dates: start: 2003

REACTIONS (7)
  - Fistula [Fatal]
  - Sepsis [Fatal]
  - Disease progression [Fatal]
  - Febrile neutropenia [Recovered/Resolved]
  - Retroperitoneal abscess [Fatal]
  - Pancytopenia [Fatal]
  - Pneumonia [Fatal]

NARRATIVE: CASE EVENT DATE: 20170225
